FAERS Safety Report 7797983-9 (Version None)
Quarter: 2011Q4

REPORT INFORMATION
  Report Type: 
  Country: None (occurrence: None)
  Receive Date: 20111005
  Receipt Date: 20110928
  Transmission Date: 20120403
  Serious: Yes (Life-Threatening)
  Sender: FDA-Public Use
  Company Number: JP-GLAXOSMITHKLINE-B0743617A

PATIENT
  Sex: Male

DRUGS (8)
  1. NITRAZEPAM [Concomitant]
     Indication: INSOMNIA
     Dosage: 5MG PER DAY
     Route: 048
  2. VALPROIC ACID [Concomitant]
     Dosage: 400MG PER DAY
     Route: 048
  3. PREDNISOLONE [Concomitant]
     Dosage: 40MG PER DAY
     Route: 065
     Dates: start: 20110827, end: 20110828
  4. SEROQUEL [Concomitant]
     Indication: INSOMNIA
     Dosage: 25MG PER DAY
     Route: 048
  5. ARICEPT [Concomitant]
     Indication: DEMENTIA ALZHEIMER'S TYPE
     Dosage: 5MG PER DAY
     Route: 048
  6. VOLTAREN [Suspect]
     Indication: PYREXIA
     Dosage: 50MG PER DAY
     Route: 054
     Dates: start: 20110827
  7. LAMICTAL [Suspect]
     Indication: AGITATION
     Dosage: 25MG PER DAY
     Route: 048
     Dates: start: 20110802, end: 20110827
  8. MEMANTINE HYDROCHLORIDE [Suspect]
     Indication: DEMENTIA ALZHEIMER'S TYPE
     Dosage: 5MG PER DAY
     Route: 048

REACTIONS (3)
  - ANAPHYLACTIC SHOCK [None]
  - RASH [None]
  - BLOOD PRESSURE DECREASED [None]
